FAERS Safety Report 23776264 (Version 1)
Quarter: 2024Q2

REPORT INFORMATION
  Report Type: Report from Study
  Country: CL (occurrence: CL)
  Receive Date: 20240424
  Receipt Date: 20240424
  Transmission Date: 20240716
  Serious: Yes (Death, Hospitalization)
  Sender: FDA-Public Use
  Company Number: CL-TEVA-VS-3186763

PATIENT
  Age: 57 Year
  Sex: Female

DRUGS (2)
  1. LACTULOSE [Suspect]
     Active Substance: LACTULOSE
     Indication: Hepatic encephalopathy
     Route: 065
  2. RIFAXIMIN [Suspect]
     Active Substance: RIFAXIMIN
     Indication: Hepatic encephalopathy
     Route: 065

REACTIONS (1)
  - Drug ineffective [Fatal]
